FAERS Safety Report 25684220 (Version 1)
Quarter: 2025Q3

REPORT INFORMATION
  Report Type: Spontaneous
  Country: EU (occurrence: EU)
  Receive Date: 20250815
  Receipt Date: 20250815
  Transmission Date: 20251021
  Serious: Yes (Other)
  Sender: CELLTRION
  Company Number: None

PATIENT

DRUGS (3)
  1. USTEKINUMAB [Suspect]
     Active Substance: USTEKINUMAB
     Indication: Crohn^s disease
     Route: 058
     Dates: start: 20201217, end: 20250305
  2. USTEKINUMAB [Concomitant]
     Active Substance: USTEKINUMAB
     Indication: Crohn^s disease
     Route: 042
     Dates: start: 20201015, end: 20201015
  3. TIZANIDINE [Concomitant]
     Active Substance: TIZANIDINE
     Route: 048
     Dates: start: 20200605

REACTIONS (2)
  - Acute interstitial pneumonitis [Recovering/Resolving]
  - Sarcoid-like reaction [Recovering/Resolving]

NARRATIVE: CASE EVENT DATE: 20210101
